FAERS Safety Report 5700001-7 (Version None)
Quarter: 2008Q2

REPORT INFORMATION
  Report Type: 
  Country: None (occurrence: None)
  Receive Date: 20080410
  Receipt Date: 20080403
  Transmission Date: 20081010
  Serious: Yes (Other)
  Sender: FDA-Public Use
  Company Number: BR-ASTRAZENECA-2008UW00711

PATIENT
  Age: 80 Year
  Sex: Female
  Weight: 68 kg

DRUGS (3)
  1. ARIMIDEX [Suspect]
     Indication: BREAST MASS
     Route: 048
     Dates: start: 20060801
  2. MOVOMIX [Concomitant]
     Indication: DIABETES MELLITUS
     Route: 051
     Dates: start: 20040101
  3. AAS [Concomitant]
     Route: 048
     Dates: start: 20040101

REACTIONS (4)
  - BREAST PAIN [None]
  - CATARACT [None]
  - CHROMATURIA [None]
  - HEARING IMPAIRED [None]
